FAERS Safety Report 24556044 (Version 1)
Quarter: 2024Q4

REPORT INFORMATION
  Report Type: Spontaneous
  Country: FR (occurrence: FR)
  Receive Date: 20241028
  Receipt Date: 20241028
  Transmission Date: 20250115
  Serious: Yes (Other)
  Sender: FRESENIUS KABI
  Company Number: FR-GUERBETG-FR-20240371

PATIENT
  Age: 53 Year
  Sex: Female

DRUGS (2)
  1. SODIUM CHLORIDE [Suspect]
     Active Substance: SODIUM CHLORIDE
     Indication: Computerised tomogram heart
     Dosage: ROUTE OF ADMIN: UNK?FORM OF ADMIN: UNKNOWN
     Dates: start: 20240528
  2. IOVERSOL [Suspect]
     Active Substance: IOVERSOL
     Indication: Computerised tomogram heart
     Dosage: FORM OF ADMIN.: SOLUTION FOR INJECTION
     Dates: start: 20240528, end: 20240528

REACTIONS (1)
  - Air embolism [Unknown]

NARRATIVE: CASE EVENT DATE: 20240528
